FAERS Safety Report 15191556 (Version 1)
Quarter: 2018Q3

REPORT INFORMATION
  Report Type: Report from Study
  Country: ES (occurrence: ES)
  Receive Date: 20180724
  Receipt Date: 20180724
  Transmission Date: 20181010
  Serious: Yes (Hospitalization)
  Sender: FDA-Public Use
  Company Number: ES-TEVA-2018-ES-859146

PATIENT
  Age: 48 Year
  Sex: Female

DRUGS (5)
  1. MIRTAZAPINA (2704A) [Suspect]
     Active Substance: MIRTAZAPINE
     Route: 065
     Dates: start: 20161027, end: 20161027
  2. PLENUR [Suspect]
     Active Substance: LITHIUM CARBONATE
     Route: 065
     Dates: start: 20161027, end: 20161027
  3. DALPARAN [Suspect]
     Active Substance: ZOLPIDEM TARTRATE
     Route: 065
     Dates: start: 20161027, end: 20161027
  4. VENLAFAXINA (2664A) [Suspect]
     Active Substance: VENLAFAXINE HYDROCHLORIDE
     Route: 065
     Dates: start: 20161027, end: 20161027
  5. LORAZEPAM (1864A) [Suspect]
     Active Substance: LORAZEPAM
     Route: 065
     Dates: start: 20161027, end: 20161027

REACTIONS (3)
  - Suicide attempt [Recovered/Resolved]
  - Somnolence [Recovered/Resolved]
  - Disorientation [Recovered/Resolved]

NARRATIVE: CASE EVENT DATE: 20161027
